FAERS Safety Report 7958532-5 (Version None)
Quarter: 2011Q4

REPORT INFORMATION
  Report Type: 
  Country: None (occurrence: None)
  Receive Date: 20111206
  Receipt Date: 20111130
  Transmission Date: 20120403
  Serious: Yes (Other)
  Sender: FDA-Public Use
  Company Number: AU-BIOGENIDEC-2011BI036713

PATIENT
  Age: 41 Year
  Sex: Female

DRUGS (3)
  1. AVONEX [Suspect]
     Indication: MULTIPLE SCLEROSIS
     Route: 030
     Dates: start: 20110101, end: 20110101
  2. ANTI-CHOLESTEROL MEDICATION (NOS) [Concomitant]
  3. GABAPENTIN [Concomitant]

REACTIONS (1)
  - THROMBOSIS [None]
